FAERS Safety Report 5474598-9 (Version None)
Quarter: 2007Q4

REPORT INFORMATION
  Report Type: 
  Country: None (occurrence: None)
  Receive Date: 20071002
  Receipt Date: 20070924
  Transmission Date: 20080405
  Serious: Yes (Hospitalization)
  Sender: FDA-Public Use
  Company Number: FR-ASTRAZENECA-2007CG01346

PATIENT
  Age: 22335 Day
  Sex: Female

DRUGS (3)
  1. ARIMIDEX [Suspect]
     Indication: BREAST CANCER FEMALE
     Route: 048
     Dates: start: 20040401
  2. EPIRUBICIN [Suspect]
     Indication: BREAST CANCER FEMALE
     Dosage: SIX CYCLES RECEIVED
     Route: 042
     Dates: start: 20031017, end: 20040101
  3. TAXOTERE [Suspect]
     Indication: BREAST CANCER FEMALE
     Dosage: SIX CYCLES RECEIVED
     Route: 042
     Dates: start: 20031017, end: 20040101

REACTIONS (2)
  - PELIOSIS HEPATIS [None]
  - TRANSAMINASES INCREASED [None]
